FAERS Safety Report 15001009 (Version 1)
Quarter: 2018Q3

REPORT INFORMATION
  Report Type: Spontaneous
  Country: US (occurrence: US)
  Receive Date: 20180612
  Receipt Date: 20180612
  Transmission Date: 20181010
  Serious: No
  Sender: FDA-Public Use
  Company Number: US-SA-2018SA151198

PATIENT
  Age: 39 Year
  Sex: Female

DRUGS (1)
  1. KAOPECTATE [Suspect]
     Active Substance: BISMUTH SUBSALICYLATE

REACTIONS (1)
  - Drug ineffective [Unknown]

NARRATIVE: CASE EVENT DATE: 20180512
